FAERS Safety Report 21666487 (Version 1)
Quarter: 2022Q4

REPORT INFORMATION
  Report Type: Spontaneous
  Country: US (occurrence: US)
  Receive Date: 20221201
  Receipt Date: 20221201
  Transmission Date: 20230113
  Serious: Yes (Hospitalization, Other)
  Sender: FDA-Public Use
  Company Number: US-CADILA HEALTHCARE LIMITED-US-ZYDUS-085189

PATIENT

DRUGS (8)
  1. DECITABINE [Suspect]
     Active Substance: DECITABINE
     Indication: Myelodysplastic syndrome
     Dosage: 20 MILLIGRAM/SQ. METER, QD, ON DAYS 1-10 INITIALLY
     Route: 065
  2. MYCOPHENOLATE MOFETIL [Suspect]
     Active Substance: MYCOPHENOLATE MOFETIL
     Indication: Prophylaxis against graft versus host disease
     Dosage: UNK
     Route: 065
  3. CYCLOPHOSPHAMIDE [Suspect]
     Active Substance: CYCLOPHOSPHAMIDE
     Indication: Prophylaxis against graft versus host disease
     Dosage: 37.5 MILLIGRAM/KILOGRAM, QD
     Route: 065
  4. CYCLOPHOSPHAMIDE [Suspect]
     Active Substance: CYCLOPHOSPHAMIDE
     Dosage: 14.5 MILLIGRAM/KILOGRAM, QD
     Route: 065
  5. VYXEOS [Suspect]
     Active Substance: CYTARABINE\DAUNORUBICIN
     Indication: Myelodysplastic syndrome
     Dosage: 100 UNITS/M2  ON DAYS 1, 3 AND 5 AS INDUCTION THERAPY
     Route: 065
  6. TACROLIMUS [Concomitant]
     Active Substance: TACROLIMUS
     Indication: Product used for unknown indication
     Dosage: UNK
     Route: 065
  7. FLUDARABINE [Concomitant]
     Active Substance: FLUDARABINE PHOSPHATE
     Indication: Product used for unknown indication
     Dosage: 24 MILLIGRAM PER CUBIC METRE, QD
     Route: 065
  8. ECULIZUMAB [Concomitant]
     Active Substance: ECULIZUMAB
     Indication: Atypical haemolytic uraemic syndrome
     Dosage: UNK
     Route: 065

REACTIONS (3)
  - Atypical haemolytic uraemic syndrome [Recovered/Resolved]
  - Delayed engraftment [Unknown]
  - Drug ineffective [Unknown]
